FAERS Safety Report 9672086 (Version 3)
Quarter: 2014Q1

REPORT INFORMATION
  Report Type: Report from Study
  Country: DE (occurrence: DE)
  Receive Date: 20131106
  Receipt Date: 20140205
  Transmission Date: 20141002
  Serious: Yes (Death, Other)
  Sender: FDA-Public Use
  Company Number: DE-TAKEDA-TPA2013A02615

PATIENT
  Sex: 0

DRUGS (23)
  1. FEBUXOSTAT [Suspect]
     Indication: TUMOUR LYSIS SYNDROME
     Dosage: 120 MG, QD
     Route: 048
     Dates: start: 20130327, end: 20130401
  2. RITUXIMAB [Concomitant]
     Indication: CHEMOTHERAPY
     Dosage: 375 ML, UNK
     Dates: start: 20130329, end: 20130401
  3. IFOSFAMIDA [Concomitant]
     Indication: CHEMOTHERAPY
     Dosage: 3520 MG, UNK
     Dates: start: 20130329, end: 20130401
  4. CARBOPLATIN [Concomitant]
     Indication: CHEMOTHERAPY
     Dosage: 207 MG, UNK
     Dates: start: 20130329, end: 20130401
  5. ETOPOSID [Concomitant]
     Indication: CHEMOTHERAPY
     Dosage: 352 MG, UNK
     Dates: start: 20130330, end: 20130401
  6. VITAMIN B12 [Concomitant]
     Indication: VITAMIN B12 DEFICIENCY
     Dosage: 1000 ?G, 1/WEEK
     Route: 030
  7. FOLIC ACID [Concomitant]
     Indication: FOLATE DEFICIENCY
     Dosage: 5 MG,QD
     Route: 048
  8. BIFITERAL [Concomitant]
     Indication: CONSTIPATION
     Dosage: 10 MG,QD
     Route: 048
  9. IRENAT [Concomitant]
     Indication: HYPERTHYROIDISM
     Dosage: 20 GTT,TID
     Route: 048
     Dates: start: 20130325
  10. PASPERTIN [Concomitant]
     Indication: PROPHYLAXIS OF NAUSEA AND VOMITING
     Dosage: 20 GTT,TID
     Route: 048
     Dates: start: 20130321
  11. PANTOZOL [Concomitant]
     Indication: PROPHYLAXIS OF NAUSEA AND VOMITING
     Dosage: 40 MG,QD
     Route: 048
     Dates: start: 20130201
  12. PALLADON [Concomitant]
     Indication: PAIN IN EXTREMITY
     Dosage: 3 ML, Q1HR
     Route: 041
     Dates: start: 20130321
  13. GABAPENTIN [Concomitant]
     Indication: PAIN IN EXTREMITY
     Dosage: 300 MG,7 IN  1 DAY
     Route: 048
     Dates: start: 20130201
  14. AMITRIPTYLIN [Concomitant]
     Indication: PAIN IN EXTREMITY
     Route: 048
     Dates: start: 20130329
  15. NOVALGIN [Concomitant]
     Indication: PAIN IN EXTREMITY
     Dosage: 20 GTT,QD
     Route: 048
     Dates: start: 20130201
  16. AMPHO-MORONAL [Concomitant]
     Indication: PROPHYLAXIS
     Dosage: 1 GTT, QD
     Route: 060
     Dates: start: 20130401
  17. PREDNISOLON [Concomitant]
     Indication: PROPHYLAXIS
     Dosage: 40 MG,UNK
     Route: 048
  18. CLEXANE [Concomitant]
     Indication: PROPHYLAXIS
     Dosage: 0.4 ML, UNK
     Route: 058
     Dates: start: 20130321
  19. OXYCODONE [Concomitant]
     Indication: PAIN
     Route: 048
     Dates: start: 20130201, end: 20130321
  20. TAZOBAC [Concomitant]
     Indication: INFECTION
     Dosage: 4.5 GM,TID
     Route: 042
     Dates: start: 20130321, end: 20130327
  21. THIAMAZOL [Concomitant]
     Indication: HYPERTHYROIDISM
     Dosage: 10 MG, UNK
     Route: 048
     Dates: start: 20130325
  22. TAVOR [Concomitant]
     Indication: INSOMNIA
     Dosage: 1 MG,QD
     Route: 048
     Dates: start: 20130401, end: 20130401
  23. COTRIM [Concomitant]
     Indication: PROPHYLAXIS
     Route: 048
     Dates: start: 20130330, end: 20130410

REACTIONS (3)
  - Sepsis [Fatal]
  - Shock [Fatal]
  - Haematuria [Fatal]
